FAERS Safety Report 21011111 (Version 2)
Quarter: 2022Q3

REPORT INFORMATION
  Report Type: Spontaneous
  Country: None (occurrence: US)
  Receive Date: 20220627
  Receipt Date: 20220711
  Transmission Date: 20221027
  Serious: Yes (Hospitalization)
  Sender: FDA-Public Use
  Company Number: US-Mission Pharmacal Company-2130313

PATIENT
  Age: 22 Year
  Sex: Male

DRUGS (1)
  1. THIOLA EC [Suspect]
     Active Substance: TIOPRONIN
     Indication: Cystinuria
     Route: 048
     Dates: start: 20191205

REACTIONS (4)
  - Drug ineffective [Unknown]
  - Malaise [Unknown]
  - Haematuria [Unknown]
  - Infection [Recovered/Resolved]
